FAERS Safety Report 17734672 (Version 3)
Quarter: 2020Q2

REPORT INFORMATION
  Report Type: Spontaneous
  Country: BE (occurrence: BE)
  Receive Date: 20200501
  Receipt Date: 20200601
  Transmission Date: 20200714
  Serious: Yes (Other)
  Sender: FDA-Public Use
  Company Number: BE-MYLANLABS-2020M1043224

PATIENT
  Age: 17 Year
  Sex: Male

DRUGS (14)
  1. METHOTREXATE. [Interacting]
     Active Substance: METHOTREXATE
     Indication: T-CELL LYMPHOMA
     Dosage: I.V. HD-MTX (5000 MG/M2)
     Route: 042
  2. METHOTREXATE. [Interacting]
     Active Substance: METHOTREXATE
     Indication: NON-HODGKIN^S LYMPHOMA
     Dosage: SCHEDULED FOR 4 CYCLES BUT RECEIVED ONLY THREE CYCLES. THE FOURTH CYCLE WAS CANCEL
     Route: 042
  3. METHOTREXATE. [Suspect]
     Active Substance: METHOTREXATE
     Indication: T-CELL LYMPHOMA
     Dosage: RECEIVED ONLY THREE CYCLES AND THE FOURTH CYCLE WAS CANCEL
     Route: 037
  4. HEPARIN [Concomitant]
     Active Substance: HEPARIN SODIUM
     Indication: SUPERIOR SAGITTAL SINUS THROMBOSIS
     Dosage: LOW-MOLECULAR-WEIGHT
  5. METHYLPREDNISOLONE. [Concomitant]
     Active Substance: METHYLPREDNISOLONE
     Indication: NON-HODGKIN^S LYMPHOMA
     Dosage: RECEIVED ONLY THREE CYCLES AND THE FOURTH CYCLE WAS CANCEL
     Route: 037
  6. MERCAPTOPURINE. [Concomitant]
     Active Substance: MERCAPTOPURINE
     Indication: T-CELL LYMPHOMA
     Dosage: RECEIVED 775 MG/M2 OF THE INTENDED TOTAL OF 1400 MG/M2 (I.E., 25 MG/M2/DAY FOR 31 INSTEAD OF 56 DAY)
     Route: 048
  7. RANITIDINE. [Concomitant]
     Active Substance: RANITIDINE
     Indication: ABDOMINAL PAIN UPPER
     Dosage: UNK
     Route: 065
  8. MERCAPTOPURINE. [Concomitant]
     Active Substance: MERCAPTOPURINE
     Indication: NON-HODGKIN^S LYMPHOMA
  9. METHOTREXATE. [Interacting]
     Active Substance: METHOTREXATE
     Indication: NON-HODGKIN^S LYMPHOMA
  10. RANITIDINE. [Concomitant]
     Active Substance: RANITIDINE
     Indication: PROPHYLAXIS
  11. CYTARABINE. [Concomitant]
     Active Substance: CYTARABINE
     Indication: T-CELL LYMPHOMA
     Dosage: RECEIVED ONLY THREE CYCLES AND THE FOURTH CYCLE WAS CANCEL
     Route: 037
  12. CYTARABINE. [Concomitant]
     Active Substance: CYTARABINE
     Indication: NON-HODGKIN^S LYMPHOMA
  13. VORICONAZOLE. [Interacting]
     Active Substance: VORICONAZOLE
     Indication: BRONCHOPULMONARY ASPERGILLOSIS
     Dosage: UNK
  14. VORICONAZOLE. [Interacting]
     Active Substance: VORICONAZOLE
     Indication: PROPHYLAXIS
     Dosage: UNK
     Route: 048

REACTIONS (7)
  - Nephropathy toxic [Recovered/Resolved]
  - Drug clearance decreased [Recovered/Resolved]
  - Sunburn [Recovered/Resolved]
  - Cheilitis [Recovered/Resolved]
  - Photosensitivity reaction [Recovered/Resolved]
  - Toxicity to various agents [Recovered/Resolved]
  - Drug interaction [Recovered/Resolved]
